FAERS Safety Report 8483512-3 (Version None)
Quarter: 2012Q3

REPORT INFORMATION
  Report Type: 
  Country: None (occurrence: None)
  Receive Date: 20120702
  Receipt Date: 20120623
  Transmission Date: 20120928
  Serious: Yes (Other)
  Sender: FDA-Public Use
  Company Number: FR-FRI-1000036762

PATIENT
  Sex: Female

DRUGS (2)
  1. MEMANTINE HCL [Suspect]
     Dosage: 5 MG
  2. MEMANTINE HCL [Suspect]

REACTIONS (1)
  - HYPERTENSIVE CRISIS [None]
